FAERS Safety Report 5657880-1 (Version None)
Quarter: 2008Q1

REPORT INFORMATION
  Report Type: 
  Country: None (occurrence: None)
  Receive Date: 20080305
  Receipt Date: 20080215
  Transmission Date: 20080703
  Serious: Yes (Hospitalization)
  Sender: FDA-Public Use
  Company Number: 230002J08COL

PATIENT
  Age: 31 Year
  Sex: Female

DRUGS (5)
  1. REBIF [Suspect]
     Indication: MULTIPLE SCLEROSIS
     Dosage: 0.5 ML, 3 IN 1 WEEKS, SUBCUTANEOUS
     Route: 058
     Dates: start: 20070801, end: 20080123
  2. OMEPRAZOLE [Concomitant]
  3. CARBAMAZEPINE [Concomitant]
  4. WARFARINA (WARFARIN) [Concomitant]
  5. AMITRIPTYLINA (AMITRIPTYLINE) [Concomitant]

REACTIONS (8)
  - ABDOMINAL PAIN UPPER [None]
  - DIZZINESS [None]
  - EAR PAIN [None]
  - FACIAL PALSY [None]
  - INJECTION SITE PAIN [None]
  - MULTIPLE SCLEROSIS RELAPSE [None]
  - POOR QUALITY DRUG ADMINISTERED [None]
  - VOMITING [None]
